FAERS Safety Report 23398765 (Version 1)
Quarter: 2024Q1

REPORT INFORMATION
  Report Type: Spontaneous
  Country: US (occurrence: US)
  Receive Date: 20240112
  Receipt Date: 20240112
  Transmission Date: 20240409
  Serious: Yes (Other)
  Sender: FDA-Public Use
  Company Number: US-REGENERON PHARMACEUTICALS, INC.-2024-015354

PATIENT
  Age: 78 Year
  Sex: Female

DRUGS (1)
  1. LIBTAYO [Suspect]
     Active Substance: CEMIPLIMAB-RWLC
     Indication: Small cell lung cancer

REACTIONS (3)
  - Sjogren^s syndrome [Unknown]
  - Dry mouth [Unknown]
  - Dysphagia [Unknown]
